FAERS Safety Report 13786527 (Version 1)
Quarter: 2017Q3

REPORT INFORMATION
  Report Type: Spontaneous
  Country: US (occurrence: US)
  Receive Date: 20170725
  Receipt Date: 20170725
  Transmission Date: 20171127
  Serious: No
  Sender: FDA-Public Use
  Company Number: US-JNJFOC-20170602412

PATIENT
  Age: 90 Year
  Sex: Female

DRUGS (1)
  1. TYLENOL EXTRA STRENGTH [Suspect]
     Active Substance: ACETAMINOPHEN
     Indication: PAIN
     Route: 048

REACTIONS (4)
  - Onychoclasis [Recovered/Resolved]
  - Incorrect dose administered [Unknown]
  - Product container issue [Unknown]
  - Product package associated injury [Recovered/Resolved]

NARRATIVE: CASE EVENT DATE: 20170515
